FAERS Safety Report 9852564 (Version 2)
Quarter: 2014Q1

REPORT INFORMATION
  Report Type: Spontaneous
  Country: JP (occurrence: JP)
  Receive Date: 20140129
  Receipt Date: 20140129
  Transmission Date: 20141002
  Serious: Yes (Hospitalization)
  Sender: FDA-Public Use
  Company Number: JP-BAYER-2013-133745

PATIENT
  Age: 40 Year
  Sex: Female

DRUGS (4)
  1. MAGNEVIST [Suspect]
     Indication: NUCLEAR MAGNETIC RESONANCE IMAGING ABDOMINAL
     Dosage: 14 ML, ONCE
     Route: 042
     Dates: start: 20131029, end: 20131029
  2. MAGNEVIST [Suspect]
     Indication: OVARIAN CANCER
  3. FERROMIA [Concomitant]
     Indication: ANAEMIA
     Route: 048
  4. BUSCOPAN [Concomitant]
     Indication: NUCLEAR MAGNETIC RESONANCE IMAGING
     Dosage: UNK
     Route: 030
     Dates: start: 20131029, end: 20131029

REACTIONS (4)
  - Erythema [Recovered/Resolved]
  - Anaphylactic reaction [Recovered/Resolved]
  - Distributive shock [Recovered/Resolved]
  - Slow response to stimuli [Recovered/Resolved]
